FAERS Safety Report 5416404-4 (Version None)
Quarter: 2007Q3

REPORT INFORMATION
  Report Type: 
  Country: None (occurrence: None)
  Receive Date: 20070814
  Receipt Date: 20070807
  Transmission Date: 20080115
  Serious: Yes (Death)
  Sender: FDA-Public Use
  Company Number: 163-21880-07070329

PATIENT
  Age: 70 Year
  Sex: Male

DRUGS (1)
  1. REVLIMID ENALIDOMIDE)(25 MILLIGRAM, CAPSULES) [Suspect]
     Indication: MULTIPLE MYELOMA
     Dosage: 25 MG, 1 IN 1 D, ORAL
     Route: 048
     Dates: start: 20070301, end: 20070601

REACTIONS (3)
  - CARDIAC FAILURE [None]
  - DISEASE PROGRESSION [None]
  - RESPIRATORY FAILURE [None]
